FAERS Safety Report 25239563 (Version 1)
Quarter: 2025Q2

REPORT INFORMATION
  Report Type: Spontaneous
  Country: JP (occurrence: JP)
  Receive Date: 20250425
  Receipt Date: 20250425
  Transmission Date: 20250717
  Serious: Yes (Hospitalization)
  Sender: MERCK SHARP & DOHME LLC
  Company Number: JP-009507513-2278765

PATIENT
  Age: 7 Decade
  Sex: Male

DRUGS (3)
  1. KEYTRUDA [Suspect]
     Active Substance: PEMBROLIZUMAB
     Indication: Bile duct cancer stage IV
     Dosage: 200 MG ONCE EVERY 3 WEEKS
     Route: 041
  2. GEMCITABINE [Concomitant]
     Active Substance: GEMCITABINE
     Dosage: 800MG/KG ONCE EVERY 4 WEEKS
     Route: 041
     Dates: start: 202411
  3. CISPLATIN [Concomitant]
     Active Substance: CISPLATIN
     Dosage: 20MG/KG ONCE EVERY 4 WEEKS
     Route: 041
     Dates: start: 202411

REACTIONS (2)
  - Hypersensitivity pneumonitis [Unknown]
  - Neutrophil count decreased [Recovering/Resolving]

NARRATIVE: CASE EVENT DATE: 20241201
